FAERS Safety Report 6531624-3 (Version None)
Quarter: 2010Q1

REPORT INFORMATION
  Report Type: 
  Country: None (occurrence: None)
  Receive Date: 20100108
  Receipt Date: 20091229
  Transmission Date: 20100710
  Serious: Yes (Other)
  Sender: FDA-Public Use
  Company Number: BE-PFIZER INC-2010001323

PATIENT
  Age: 6 Year
  Sex: Female

DRUGS (1)
  1. ATENOLOL [Suspect]
     Dosage: 15 MG, UNK
     Dates: start: 20070101

REACTIONS (2)
  - DEPRESSION [None]
  - DEPRESSION SUICIDAL [None]
